FAERS Safety Report 15030123 (Version 2)
Quarter: 2018Q2

REPORT INFORMATION
  Report Type: Report from Study
  Country: PL (occurrence: PL)
  Receive Date: 20180619
  Receipt Date: 20180627
  Transmission Date: 20180711
  Serious: Yes (Hospitalization)
  Sender: FDA-Public Use
  Company Number: PL-AMGEN-POLCT2018081310

PATIENT
  Age: 69 Year
  Sex: Male
  Weight: 88 kg

DRUGS (12)
  1. CARFILZOMIB [Suspect]
     Active Substance: CARFILZOMIB
     Indication: PLASMA CELL MYELOMA
     Dosage: 106 MG, PER CHEMO REGIM
     Route: 042
     Dates: start: 20180109
  2. DEXAMETHASONE. [Concomitant]
     Active Substance: DEXAMETHASONE
     Indication: PLASMA CELL MYELOMA
     Dosage: 20 -40 MG, UNK
     Route: 048
     Dates: start: 20180109
  3. EUTHYROX [Concomitant]
     Active Substance: LEVOTHYROXINE SODIUM
     Dosage: 25 MG, UNK
     Dates: start: 20170828
  4. ATORIS [Concomitant]
     Active Substance: ATORVASTATIN CALCIUM
     Dosage: 20 MG, UNK
     Dates: start: 20170928
  5. FLUCONAZOLE. [Concomitant]
     Active Substance: FLUCONAZOLE
     Dosage: 100 MG, UNK
     Dates: start: 20180226
  6. ACARD [Concomitant]
     Active Substance: ASPIRIN
     Dosage: 75 MG, UNK
     Dates: start: 20130328
  7. HEVIRAN [Concomitant]
     Active Substance: ACYCLOVIR
     Dosage: 800 MG, UNK
     Dates: start: 20180308
  8. NEBIVOLOL. [Concomitant]
     Active Substance: NEBIVOLOL
     Dosage: 1.25 MG, UNK
     Dates: start: 20170928
  9. FLEGAMINA [Concomitant]
     Active Substance: BROMHEXINE HYDROCHLORIDE
     Dosage: 8 MG, UNK
     Dates: start: 20180226
  10. FUROSEMID [Concomitant]
     Active Substance: FUROSEMIDE
     Dosage: 40 MG, UNK
     Dates: start: 20170928
  11. NACL [Concomitant]
     Active Substance: SODIUM CHLORIDE
     Dosage: 250 ML, UNK
     Route: 042
     Dates: start: 20180109
  12. AUGMENTIN [Concomitant]
     Active Substance: AMOXICILLIN\CLAVULANATE POTASSIUM
     Dosage: 1 G, UNK
     Dates: start: 20180226

REACTIONS (1)
  - Extrasystoles [Unknown]

NARRATIVE: CASE EVENT DATE: 20180613
